FAERS Safety Report 8507088-7 (Version None)
Quarter: 2012Q3

REPORT INFORMATION
  Report Type: 
  Country: None (occurrence: None)
  Receive Date: 20120703
  Receipt Date: 20120628
  Transmission Date: 20120928
  Serious: Yes (Disabling, Other)
  Sender: FDA-Public Use
  Company Number: 2012SP036306

PATIENT
  Age: 64 Year
  Sex: Female
  Weight: 67.1324 kg

DRUGS (6)
  1. NEURONTIN [Suspect]
     Indication: HERPES ZOSTER
  2. CRESTOR [Concomitant]
  3. ELAVIL [Concomitant]
  4. LYRICA [Suspect]
     Indication: HERPES ZOSTER
     Dosage: 300 MG
     Dates: start: 20090101
  5. PLAQUENIL [Concomitant]
  6. TICE BCG [Suspect]
     Indication: BLADDER CANCER

REACTIONS (5)
  - BLADDER CANCER RECURRENT [None]
  - ROAD TRAFFIC ACCIDENT [None]
  - POST-TRAUMATIC PAIN [None]
  - HEMIPLEGIA [None]
  - URINARY INCONTINENCE [None]
